FAERS Safety Report 10884765 (Version 4)
Quarter: 2015Q2

REPORT INFORMATION
  Report Type: Spontaneous
  Country: IT (occurrence: IT)
  Receive Date: 20150304
  Receipt Date: 20150528
  Transmission Date: 20150821
  Serious: Yes (Death, Hospitalization)
  Sender: FDA-Public Use
  Company Number: IT-SA-2015SA025246

PATIENT
  Age: 68 Year
  Sex: Female

DRUGS (10)
  1. MYOZYME [Suspect]
     Active Substance: ALGLUCOSIDASE ALFA
     Indication: GLYCOGEN STORAGE DISEASE TYPE II
     Dosage: LASTINFUSIONMADE ON24-JAN-2015 ATA DOSE OF 1400 MG.
     Route: 041
     Dates: end: 20150111
  2. MIRTAZAPINE. [Concomitant]
     Active Substance: MIRTAZAPINE
  3. STILNOX [Concomitant]
     Active Substance: ZOLPIDEM TARTRATE
  4. DUROGESIC [Concomitant]
     Active Substance: FENTANYL
  5. ONBREZ [Concomitant]
     Active Substance: INDACATEROL
  6. OMEPRAZOLE. [Concomitant]
     Active Substance: OMEPRAZOLE
  7. PECFENT [Concomitant]
     Active Substance: FENTANYL CITRATE
  8. EXEMESTANE. [Concomitant]
     Active Substance: EXEMESTANE
  9. CHOLECALCIFEROL [Concomitant]
     Active Substance: CHOLECALCIFEROL
  10. MYOZYME [Suspect]
     Active Substance: ALGLUCOSIDASE ALFA
     Indication: GLYCOGEN STORAGE DISEASE TYPE II
     Route: 041
     Dates: start: 200512

REACTIONS (8)
  - Breast cancer metastatic [Fatal]
  - Metastases to spine [Fatal]
  - Pulmonary embolism [Fatal]
  - Hypoxia [Fatal]
  - Respiratory disorder [Fatal]
  - Inappropriate schedule of drug administration [Fatal]
  - Chronic obstructive pulmonary disease [Fatal]
  - Hypercapnia [Fatal]

NARRATIVE: CASE EVENT DATE: 2014
